FAERS Safety Report 7227101-7 (Version None)
Quarter: 2011Q1

REPORT INFORMATION
  Report Type: 
  Country: None (occurrence: None)
  Receive Date: 20110114
  Receipt Date: 20110111
  Transmission Date: 20110831
  Serious: Yes (Other)
  Sender: FDA-Public Use
  Company Number: ES-ROCHE-751373

PATIENT
  Age: 35 Year
  Sex: Female

DRUGS (3)
  1. RIBAVIRIN [Concomitant]
  2. PEGASYS [Suspect]
     Route: 065
  3. INTERFERON ALFA-2A [Suspect]
     Route: 065

REACTIONS (1)
  - EPILEPSY [None]
